FAERS Safety Report 6636891-3 (Version None)
Quarter: 2010Q1

REPORT INFORMATION
  Report Type: 
  Country: None (occurrence: None)
  Receive Date: 20100316
  Receipt Date: 20100306
  Transmission Date: 20100710
  Serious: Yes (Other)
  Sender: FDA-Public Use
  Company Number: PHHY2010BR13967

PATIENT
  Sex: Female

DRUGS (1)
  1. VOLTAREN [Suspect]
     Dosage: 50 MG
     Dates: start: 20100201

REACTIONS (10)
  - BREAST SWELLING [None]
  - DEPRESSION [None]
  - DERMATITIS BULLOUS [None]
  - HEADACHE [None]
  - HYPOAESTHESIA [None]
  - INSOMNIA [None]
  - LOCAL SWELLING [None]
  - NIGHTMARE [None]
  - OEDEMA PERIPHERAL [None]
  - PARAESTHESIA [None]
